FAERS Safety Report 9229852 (Version 1)
Quarter: 2013Q2

REPORT INFORMATION
  Report Type: Spontaneous
  Country: US (occurrence: US)
  Receive Date: 20130415
  Receipt Date: 20130415
  Transmission Date: 20140414
  Serious: No
  Sender: FDA-Public Use
  Company Number: US-009507513-1304USA005032

PATIENT
  Sex: Female

DRUGS (8)
  1. SAPHRIS [Suspect]
     Dosage: 5 MG, HS
  2. XANAX [Concomitant]
  3. TOPAMAX [Concomitant]
  4. CRESTOR [Concomitant]
  5. FLEXERIL [Concomitant]
  6. OXYCODONE [Concomitant]
  7. COGENTIN [Concomitant]
  8. COMBIVENT [Concomitant]

REACTIONS (3)
  - Sensation of heaviness [Unknown]
  - Increased tendency to bruise [Unknown]
  - Underdose [Unknown]
